FAERS Safety Report 13343043 (Version 2)
Quarter: 2017Q2

REPORT INFORMATION
  Report Type: Spontaneous
  Country: NZ (occurrence: NZ)
  Receive Date: 20170316
  Receipt Date: 20170427
  Transmission Date: 20170830
  Serious: Yes (Other)
  Sender: FDA-Public Use
  Company Number: NZ-KADMON PHARMACEUTICALS, LLC-KAD-201703-00268

PATIENT
  Sex: Female

DRUGS (2)
  1. RIBAVIRIN. [Suspect]
     Active Substance: RIBAVIRIN
     Indication: HEPATITIS C
     Dosage: TABLET
     Route: 048
  2. VIEKIRA PAK [Suspect]
     Active Substance: DASABUVIR\OMBITASVIR\PARITAPREVIR\RITONAVIR
     Indication: HEPATITIS C
     Dosage: TABLET
     Route: 048

REACTIONS (7)
  - Aura [Unknown]
  - Migraine with aura [Unknown]
  - Photophobia [Unknown]
  - Tension headache [Unknown]
  - Headache [Unknown]
  - Visual impairment [Unknown]
  - Presbyopia [Unknown]
